FAERS Safety Report 6178911-9 (Version None)
Quarter: 2009Q2

REPORT INFORMATION
  Report Type: 
  Country: None (occurrence: None)
  Receive Date: 20090505
  Receipt Date: 20090422
  Transmission Date: 20091009
  Serious: Yes (Other)
  Sender: FDA-Public Use
  Company Number: AU-PFIZER INC-2009202811

PATIENT

DRUGS (1)
  1. ZOLOFT [Suspect]
     Dosage: 150 MG, UNK
     Dates: start: 20090101

REACTIONS (1)
  - MYOCLONUS [None]
